FAERS Safety Report 5385401-X (Version None)
Quarter: 2007Q3

REPORT INFORMATION
  Report Type: 
  Country: None (occurrence: None)
  Receive Date: 20070709
  Receipt Date: 20070626
  Transmission Date: 20080115
  Serious: No
  Sender: FDA-Public Use
  Company Number: 2007-160697-NL

PATIENT
  Age: 39 Year
  Sex: Male

DRUGS (7)
  1. MIRTAZAPINE [Suspect]
     Indication: ANXIETY
     Dosage: DR/30 MG, ORAL
     Route: 048
     Dates: start: 20051001, end: 20051201
  2. MIRTAZAPINE [Suspect]
     Indication: DEPRESSION
     Dosage: DR/30 MG, ORAL
     Route: 048
     Dates: start: 20051001, end: 20051201
  3. MIRTAZAPINE [Suspect]
     Indication: INSOMNIA
     Dosage: DR/30 MG, ORAL
     Route: 048
     Dates: start: 20051001, end: 20051201
  4. MIRTAZAPINE [Suspect]
     Indication: ANXIETY
     Dosage: DR/30 MG, ORAL
     Route: 048
     Dates: start: 20060101, end: 20060301
  5. MIRTAZAPINE [Suspect]
     Indication: DEPRESSION
     Dosage: DR/30 MG, ORAL
     Route: 048
     Dates: start: 20060101, end: 20060301
  6. MIRTAZAPINE [Suspect]
     Indication: INSOMNIA
     Dosage: DR/30 MG, ORAL
     Route: 048
     Dates: start: 20060101, end: 20060301
  7. VENALFAXINE HYDROCHLORIDE [Suspect]
     Dosage: 150 MG
     Dates: end: 20060201

REACTIONS (3)
  - DRUG WITHDRAWAL SYNDROME [None]
  - RESTLESS LEGS SYNDROME [None]
  - SEROTONIN SYNDROME [None]
